FAERS Safety Report 6705034-X (Version None)
Quarter: 2010Q2

REPORT INFORMATION
  Report Type: 
  Country: None (occurrence: None)
  Receive Date: 20100430
  Receipt Date: 20100423
  Transmission Date: 20101027
  Serious: Yes (Hospitalization)
  Sender: FDA-Public Use
  Company Number: B0645357A

PATIENT
  Sex: Female

DRUGS (6)
  1. VALTREX [Suspect]
     Indication: HERPES ZOSTER
     Dosage: 3000MG PER DAY
     Route: 048
     Dates: start: 20090728, end: 20090731
  2. MICARDIS [Concomitant]
     Indication: HYPERTENSION
     Dosage: 40MG PER DAY
     Route: 048
     Dates: end: 20090801
  3. NORVASC [Concomitant]
     Indication: HYPERTENSION
     Dosage: 5MG PER DAY
     Route: 048
     Dates: end: 20090801
  4. GLUCOBAY [Concomitant]
     Indication: DIABETES MELLITUS
     Dosage: 150MG PER DAY
     Route: 048
  5. AMARYL [Concomitant]
     Indication: DIABETES MELLITUS
     Dosage: 1MG PER DAY
     Route: 048
     Dates: end: 20090801
  6. GLYCORAN [Concomitant]
     Indication: DIABETES MELLITUS
     Dosage: 500MG PER DAY
     Route: 048
     Dates: start: 20090324, end: 20090801

REACTIONS (6)
  - DECREASED APPETITE [None]
  - DIZZINESS [None]
  - MALAISE [None]
  - RENAL IMPAIRMENT [None]
  - TOXIC ENCEPHALOPATHY [None]
  - VOMITING [None]
